FAERS Safety Report 22291393 (Version 1)
Quarter: 2023Q2

REPORT INFORMATION
  Report Type: Spontaneous
  Country: FR (occurrence: FR)
  Receive Date: 20230506
  Receipt Date: 20230506
  Transmission Date: 20230721
  Serious: Yes (Hospitalization)
  Sender: FDA-Public Use
  Company Number: None

PATIENT
  Age: 14 Year
  Sex: Male
  Weight: 80 kg

DRUGS (5)
  1. FLUOXETINE HYDROCHLORIDE [Suspect]
     Active Substance: FLUOXETINE HYDROCHLORIDE
     Indication: Intentional overdose
     Dosage: STRENGTH : 20 MG,   FREQUENCY TIME : 1 TOTAL, DURATION : 1 DAY
     Dates: start: 20211213, end: 20211213
  2. OLANZAPINE BENZOATE [Suspect]
     Active Substance: OLANZAPINE BENZOATE
     Indication: Intentional overdose
     Dosage: FREQUENCY TIME : 1 TOTAL, DURATION : 1 DAY
     Dates: start: 20211213, end: 20211213
  3. TRANXENE [Suspect]
     Active Substance: CLORAZEPATE DIPOTASSIUM
     Indication: Intentional overdose
     Dosage: STRENGTH : 5 MG, FREQUENCY TIME : 1 TOTAL, DURATION : 1 DAY
     Dates: start: 20211213, end: 20211213
  4. LEVOMEPROMAZINE [Suspect]
     Active Substance: LEVOMEPROMAZINE
     Indication: Intentional overdose
     Dosage: STRENGTH : 25 MG, SCORED FILM-COATED TABLET, FREQUENCY TIME : 1 TOTAL, DURATION : 1 DAY
     Dates: start: 20211213, end: 20211213
  5. DEPAKOTE [Suspect]
     Active Substance: DIVALPROEX SODIUM
     Indication: Intentional overdose
     Dosage: STRENGTH : 500 MG, FREQUENCY TIME : 1 TOTAL, DURATION : 1 DAY
     Dates: start: 20211213, end: 20211213

REACTIONS (2)
  - Somnolence [Unknown]
  - Intentional overdose [Recovered/Resolved]

NARRATIVE: CASE EVENT DATE: 20211213
